FAERS Safety Report 10047124 (Version 4)
Quarter: 2014Q2

REPORT INFORMATION
  Report Type: Report from Study
  Country: GB (occurrence: GB)
  Receive Date: 20140331
  Receipt Date: 20140414
  Transmission Date: 20141212
  Serious: Yes (Hospitalization)
  Sender: FDA-Public Use
  Company Number: GB-CELGENEUS-167-21880-14024680

PATIENT
  Age: 68 Year
  Sex: Female

DRUGS (4)
  1. REVLIMID [Suspect]
     Indication: PLASMA CELL MYELOMA
     Dosage: 10 MILLIGRAM
     Route: 048
     Dates: start: 20140204, end: 20140307
  2. DEXAMETHASONE [Suspect]
     Indication: PLASMA CELL MYELOMA
     Dosage: 10 MILLIGRAM
     Route: 048
     Dates: start: 20140204, end: 20140307
  3. CYCLOPHOSPHAMIDE [Suspect]
     Indication: PLASMA CELL MYELOMA
     Dosage: 500 MILLIGRAM
     Route: 048
     Dates: start: 20140204, end: 20140307
  4. LITHIUM [Suspect]
     Indication: BIPOLAR I DISORDER
     Route: 065

REACTIONS (6)
  - Mania [Recovered/Resolved]
  - Insomnia [Recovered/Resolved]
  - Aspartate aminotransferase increased [Recovered/Resolved]
  - Insomnia [Recovered/Resolved]
  - Anaemia [Recovered/Resolved]
  - Convulsion [Recovered/Resolved]
